FAERS Safety Report 4446853-2 (Version None)
Quarter: 2004Q3

REPORT INFORMATION
  Report Type: 
  Country: None (occurrence: None)
  Receive Date: 20040902
  Receipt Date: 20040817
  Transmission Date: 20050211
  Serious: Yes (Death, Hospitalization)
  Sender: FDA-Public Use
  Company Number: EWC040740036

PATIENT
  Age: 41 Year
  Sex: Male

DRUGS (9)
  1. XIGRIS [Suspect]
     Indication: SEPSIS
     Dosage: 24 MICROG/KG/HR
     Dates: start: 20040719, end: 20040720
  2. ROCEPHIN [Concomitant]
  3. SOLU-MEDROL [Concomitant]
  4. AMPICILLIN [Concomitant]
  5. DOBUTAMINE [Concomitant]
  6. PROPOFOL [Concomitant]
  7. LEVOPHED [Concomitant]
  8. DORMICUM (MIDAZOLAM MALEATE) [Concomitant]
  9. FENTANYL [Concomitant]

REACTIONS (5)
  - CARDIAC ARREST [None]
  - CARDIAC FAILURE [None]
  - INTERNATIONAL NORMALISED RATIO INCREASED [None]
  - MULTI-ORGAN FAILURE [None]
  - PLATELET COUNT DECREASED [None]
